FAERS Safety Report 7481645-1 (Version None)
Quarter: 2011Q2

REPORT INFORMATION
  Report Type: 
  Country: None (occurrence: None)
  Receive Date: 20110516
  Receipt Date: 20110503
  Transmission Date: 20111010
  Serious: Yes (Hospitalization)
  Sender: FDA-Public Use
  Company Number: US-ELI_LILLY_AND_COMPANY-US201104001596

PATIENT
  Age: 68 Year
  Sex: Male

DRUGS (15)
  1. ZYPREXA RELPREVV [Suspect]
     Indication: SCHIZOPHRENIA
     Dosage: 300 MG, UNK
     Route: 030
     Dates: start: 20110404
  2. NITRO                              /00003201/ [Concomitant]
     Indication: CHEST PAIN
     Dosage: UNK, UNKNOWN
     Route: 060
  3. INSULIN [Concomitant]
     Dosage: UNK, UNKNOWN
     Route: 065
  4. ASPIRIN [Concomitant]
     Dosage: UNK, UNKNOWN
     Route: 065
  5. MILK OF MAGNESIA TAB [Concomitant]
     Dosage: UNK, UNKNOWN
     Route: 065
  6. GALANTAMINE HYDROBROMIDE [Concomitant]
     Indication: DEMENTIA
     Dosage: UNK, UNKNOWN
     Route: 065
  7. AMLODIPINE BESYLATE [Concomitant]
     Dosage: UNK, UNKNOWN
     Route: 065
  8. LISINOPRIL [Concomitant]
     Dosage: UNK, UNKNOWN
     Route: 065
  9. CLONIDINE [Concomitant]
     Dosage: UNK, UNKNOWN
     Route: 065
  10. AMBIEN [Concomitant]
     Dosage: UNK, UNKNOWN
     Route: 065
  11. CORTICOSTEROIDS [Concomitant]
     Dosage: UNK, UNKNOWN
     Route: 045
  12. VALIUM [Concomitant]
     Dosage: UNK, UNKNOWN
     Route: 065
  13. IBUPROFEN [Concomitant]
     Dosage: UNK, UNKNOWN
     Route: 065
  14. OMEPRAZOLE [Concomitant]
     Dosage: UNK, UNKNOWN
     Route: 065
  15. VITAMIN D [Concomitant]
     Dosage: UNK, UNKNOWN
     Route: 065

REACTIONS (5)
  - REPETITIVE SPEECH [None]
  - CHILLS [None]
  - HOSTILITY [None]
  - CHEST PAIN [None]
  - ABNORMAL BEHAVIOUR [None]
